FAERS Safety Report 15065783 (Version 2)
Quarter: 2018Q2

REPORT INFORMATION
  Report Type: Report from Study
  Country: US (occurrence: US)
  Receive Date: 20180626
  Receipt Date: 20180629
  Transmission Date: 20180711
  Serious: Yes (Hospitalization)
  Sender: FDA-Public Use
  Company Number: US-ROCHE-2141741

PATIENT
  Age: 66 Year
  Sex: Male
  Weight: 84 kg

DRUGS (3)
  1. ATEZOLIZUMAB. [Suspect]
     Active Substance: ATEZOLIZUMAB
     Indication: GLIOBLASTOMA MULTIFORME
     Route: 042
     Dates: start: 20180315, end: 20180531
  2. TEMOZOLOMIDE. [Suspect]
     Active Substance: TEMOZOLOMIDE
     Indication: GLIOBLASTOMA MULTIFORME
     Dosage: DAY 1- 5 OF 28 DAYS
     Route: 048
  3. DEXAMETHASONE. [Concomitant]
     Active Substance: DEXAMETHASONE
     Dosage: INCREASED TO 6MG ON 21/JUN/2018.
     Route: 065

REACTIONS (6)
  - Hemiparesis [Unknown]
  - Confusional state [Unknown]
  - Visual impairment [Unknown]
  - Gait disturbance [Unknown]
  - Urinary incontinence [Unknown]
  - Cough [Unknown]

NARRATIVE: CASE EVENT DATE: 20180614
